FAERS Safety Report 19403543 (Version 1)
Quarter: 2021Q2

REPORT INFORMATION
  Report Type: Spontaneous
  Country: US (occurrence: US)
  Receive Date: 20210610
  Receipt Date: 20210610
  Transmission Date: 20210717
  Serious: Yes (Hospitalization)
  Sender: FDA-Public Use
  Company Number: None

PATIENT
  Age: 42 Year
  Sex: Female

DRUGS (7)
  1. DALFAMPRIDINE 10 MG ER TAB [Suspect]
     Active Substance: DALFAMPRIDINE
     Indication: MULTIPLE SCLEROSIS
     Route: 048
     Dates: start: 20181015
  2. OXYBUTYNIN. [Concomitant]
     Active Substance: OXYBUTYNIN CHLORIDE
  3. CARBAMAZEPIN [Concomitant]
     Active Substance: CARBAMAZEPINE
  4. MODAFINIL. [Concomitant]
     Active Substance: MODAFINIL
  5. GILENYA [Suspect]
     Active Substance: FINGOLIMOD HYDROCHLORIDE
     Indication: MULTIPLE SCLEROSIS
     Route: 048
     Dates: start: 20180828
  6. OLANZAPINE. [Concomitant]
     Active Substance: OLANZAPINE
  7. VIT D 3 [Concomitant]

REACTIONS (3)
  - Therapy interrupted [None]
  - Multiple sclerosis [None]
  - Hospitalisation [None]

NARRATIVE: CASE EVENT DATE: 20210513
